FAERS Safety Report 5239089-9 (Version None)
Quarter: 2007Q1

REPORT INFORMATION
  Report Type: 
  Country: None (occurrence: None)
  Receive Date: 20061208
  Receipt Date: 20050705
  Transmission Date: 20070707
  Serious: Yes (Other)
  Sender: FDA-Public Use
  Company Number: 2005UW10012

PATIENT
  Age: 64 Year
  Sex: Female
  Weight: 124.73 kg

DRUGS (2)
  1. CRESTOR [Suspect]
     Indication: BLOOD CHOLESTEROL INCREASED
     Dosage: 5 MG DAILY PO
     Route: 048
     Dates: start: 20050630
  2. DETROL [Concomitant]

REACTIONS (4)
  - FATIGUE [None]
  - INFLUENZA LIKE ILLNESS [None]
  - INSOMNIA [None]
  - THROAT IRRITATION [None]
